FAERS Safety Report 4768297-6 (Version None)
Quarter: 2005Q3

REPORT INFORMATION
  Report Type: 
  Country: None (occurrence: None)
  Receive Date: 20050906
  Receipt Date: 20050516
  Transmission Date: 20060218
  Serious: No
  Sender: FDA-Public Use
  Company Number: 2005-BP-01511BP

PATIENT
  Age: 80 Year
  Sex: Female

DRUGS (7)
  1. SPIRIVA [Suspect]
     Indication: BRONCHITIS CHRONIC
     Dosage: 18 MCG (18 MCG. QD), IH
     Route: 055
     Dates: start: 20050124, end: 20050131
  2. SPIRIVA [Suspect]
     Indication: CHRONIC OBSTRUCTIVE PULMONARY DISEASE
     Dosage: 18 MCG (18 MCG. QD), IH
     Route: 055
     Dates: start: 20050124, end: 20050131
  3. SPIRIVA [Suspect]
     Indication: PNEUMONIA
     Dosage: 18 MCG (18 MCG. QD), IH
     Route: 055
     Dates: start: 20050124, end: 20050131
  4. ADVAIR DISKUS 100/50 [Concomitant]
  5. SYNTHROID [Concomitant]
  6. PREVACID [Concomitant]
  7. ZOCOR [Concomitant]

REACTIONS (1)
  - RASH [None]
